FAERS Safety Report 5818507-9 (Version None)
Quarter: 2008Q3

REPORT INFORMATION
  Report Type: 
  Country: None (occurrence: None)
  Receive Date: 20080718
  Receipt Date: 20080710
  Transmission Date: 20090109
  Serious: Yes (Other)
  Sender: FDA-Public Use
  Company Number: 2008018246

PATIENT
  Sex: Female

DRUGS (1)
  1. PURELL MOISTURE THERAPY (ETHYL ALCOHOL) [Suspect]
     Dosage: TOPICAL
     Route: 061

REACTIONS (1)
  - THERMAL BURN [None]
